FAERS Safety Report 9772906 (Version 2)
Quarter: 2013Q4

REPORT INFORMATION
  Report Type: Report from Study
  Country: US (occurrence: US)
  Receive Date: 20131219
  Receipt Date: 20131219
  Transmission Date: 20140711
  Serious: Yes (Hospitalization, Other)
  Sender: FDA-Public Use
  Company Number: US-ABBVIE-13P-163-1130289-00

PATIENT
  Age: 41 Year
  Sex: Female

DRUGS (4)
  1. HUMIRA [Suspect]
     Indication: CROHN^S DISEASE
     Dates: start: 201304, end: 201308
  2. IRON [Concomitant]
     Indication: PRODUCT USED FOR UNKNOWN INDICATION
     Dosage: DAILY
  3. MULTIVITAMIN [Concomitant]
     Indication: PRODUCT USED FOR UNKNOWN INDICATION
     Dosage: DAILY
  4. ESTROGEN [Concomitant]
     Indication: HYSTERECTOMY
     Dates: start: 201310

REACTIONS (15)
  - Chills [Recovering/Resolving]
  - Ovarian mass [Recovering/Resolving]
  - Pyrexia [Recovering/Resolving]
  - Crohn^s disease [Unknown]
  - Ascites [Recovering/Resolving]
  - Abdominal pain [Recovering/Resolving]
  - Pain [Recovering/Resolving]
  - Dyspnoea [Recovering/Resolving]
  - Hypersensitivity [Recovering/Resolving]
  - Influenza [Recovering/Resolving]
  - Pyrexia [Recovered/Resolved]
  - Diarrhoea [Recovering/Resolving]
  - Nausea [Recovering/Resolving]
  - Vomiting [Recovering/Resolving]
  - Flatulence [Recovering/Resolving]
